FAERS Safety Report 11999200 (Version 3)
Quarter: 2016Q1

REPORT INFORMATION
  Report Type: Report from Study
  Country: US (occurrence: US)
  Receive Date: 20160204
  Receipt Date: 20160309
  Transmission Date: 20160526
  Serious: No
  Sender: FDA-Public Use
  Company Number: US-AMGEN-USASL2016012177

PATIENT
  Age: 32 Year
  Sex: Female

DRUGS (1)
  1. ENBREL [Suspect]
     Active Substance: ETANERCEPT
     Indication: RHEUMATOID ARTHRITIS
     Dosage: 50 MG, QWK
     Route: 065
     Dates: start: 20160118

REACTIONS (8)
  - Injection site pain [Not Recovered/Not Resolved]
  - Injection site irritation [Unknown]
  - Sinusitis [Unknown]
  - Injection site bruising [Not Recovered/Not Resolved]
  - Malaise [Unknown]
  - Injection site erythema [Unknown]
  - Wrong technique in product usage process [Unknown]
  - Pharyngitis streptococcal [Unknown]

NARRATIVE: CASE EVENT DATE: 2016
